FAERS Safety Report 4437912-9 (Version None)
Quarter: 2004Q3

REPORT INFORMATION
  Report Type: 
  Country: None (occurrence: None)
  Receive Date: 20040831
  Receipt Date: 20040820
  Transmission Date: 20050211
  Serious: Yes (Death)
  Sender: FDA-Public Use
  Company Number: GB-JNJFOC-20040203183

PATIENT
  Sex: Male

DRUGS (1)
  1. TOPIRMATE [Suspect]
     Indication: EPILEPSY
     Route: 065
     Dates: start: 20020314

REACTIONS (5)
  - CONVULSION [None]
  - DIABETES MELLITUS [None]
  - GLIOBLASTOMA [None]
  - METASTATIC NEOPLASM [None]
  - SOMNOLENCE [None]
